FAERS Safety Report 7178170-4 (Version None)
Quarter: 2010Q4

REPORT INFORMATION
  Report Type: 
  Country: None (occurrence: None)
  Receive Date: 20101220
  Receipt Date: 20101209
  Transmission Date: 20110411
  Serious: Yes (Hospitalization)
  Sender: FDA-Public Use
  Company Number: Z0005911A

PATIENT
  Age: 63 Year
  Sex: Male
  Weight: 156.2 kg

DRUGS (9)
  1. GW685698 + GW642444 INHALATION POWDER [Suspect]
     Indication: CHRONIC OBSTRUCTIVE PULMONARY DISEASE
     Route: 055
     Dates: start: 20100708
  2. ADVAIR [Suspect]
     Indication: CHRONIC OBSTRUCTIVE PULMONARY DISEASE
     Route: 055
     Dates: start: 20100611, end: 20100708
  3. CLARITIN [Concomitant]
     Indication: SEASONAL ALLERGY
     Dosage: 10MG PER DAY
     Route: 048
     Dates: start: 20100915
  4. GUAIFENESIN [Concomitant]
     Indication: SEASONAL ALLERGY
     Dosage: 600MG TWICE PER DAY
     Route: 048
     Dates: start: 20100915
  5. DIGOXIN [Concomitant]
     Indication: ATRIAL FIBRILLATION
     Dosage: .25MG PER DAY
     Route: 048
     Dates: start: 20101005
  6. BUMETANIDE [Concomitant]
     Indication: ATRIAL FIBRILLATION
     Dosage: 1MG PER DAY
     Route: 048
     Dates: start: 20101005
  7. WARFARIN SODIUM [Concomitant]
     Indication: CARDIOMYOPATHY
     Dosage: 5MG ALTERNATE DAYS
     Route: 048
     Dates: start: 20101008
  8. WARFARIN SODIUM [Concomitant]
     Dosage: 2.5MG ALTERNATE DAYS
     Route: 048
     Dates: start: 20101008
  9. METOPROLOL XL [Concomitant]
     Indication: HYPERTENSION
     Dosage: 100MG TWICE PER DAY
     Route: 048
     Dates: start: 20101005

REACTIONS (2)
  - ATRIAL FIBRILLATION [None]
  - CARDIOMYOPATHY [None]
